FAERS Safety Report 9388909 (Version 3)
Quarter: 2014Q2

REPORT INFORMATION
  Report Type: Spontaneous
  Country: US (occurrence: US)
  Receive Date: 20130708
  Receipt Date: 20140422
  Transmission Date: 20141212
  Serious: Yes (Hospitalization)
  Sender: FDA-Public Use
  Company Number: US-BRISTOL-MYERS SQUIBB COMPANY-19073816

PATIENT
  Age: 57 Year
  Sex: Male

DRUGS (9)
  1. ABILIFY [Suspect]
     Indication: BIPOLAR DISORDER
     Dosage: TABLET,LAST DOSE: 11APR13
     Route: 048
     Dates: start: 20130328
  2. ABILIFY MAINTENA INJECTION [Suspect]
     Indication: BIPOLAR DISORDER
     Dosage: ROUTE: IM?MAINTENA?400MG TWICE?RIGHT GLUTEAL?REG2-14MAY13-UNK
     Dates: start: 20130411, end: 20130515
  3. CELEXA [Concomitant]
  4. LITHIUM [Concomitant]
  5. COGENTIN [Concomitant]
  6. ATIVAN [Concomitant]
  7. BENADRYL [Concomitant]
  8. CARDIZEM [Concomitant]
  9. ZOCOR [Concomitant]

REACTIONS (9)
  - Confusional state [Recovered/Resolved]
  - Akathisia [Recovered/Resolved]
  - Extrapyramidal disorder [Recovered/Resolved]
  - Accidental overdose [Recovered/Resolved]
  - Gait disturbance [Recovered/Resolved]
  - Speech disorder [Recovered/Resolved]
  - Disorientation [Recovered/Resolved]
  - Mental status changes [Recovered/Resolved]
  - Off label use [Unknown]
